FAERS Safety Report 13301763 (Version 1)
Quarter: 2017Q1

REPORT INFORMATION
  Report Type: Spontaneous
  Country: DE (occurrence: DE)
  Receive Date: 20170307
  Receipt Date: 20170307
  Transmission Date: 20170428
  Serious: Yes (Other)
  Sender: FDA-Public Use
  Company Number: PHHY2017DE032641

PATIENT
  Sex: Female

DRUGS (3)
  1. RAMIPLUS AL [Suspect]
     Active Substance: HYDROCHLOROTHIAZIDE\RAMIPRIL
     Indication: BLOOD PRESSURE ABNORMAL
     Dosage: 5/25 MG
     Route: 065
  2. RAMIPLUS AL [Suspect]
     Active Substance: HYDROCHLOROTHIAZIDE\RAMIPRIL
     Dosage: 2.5/12.5 MG
     Route: 065
  3. TEGRETAL [Suspect]
     Active Substance: CARBAMAZEPINE
     Indication: PRODUCT USED FOR UNKNOWN INDICATION
     Dosage: 200 MG, UNK
     Route: 065

REACTIONS (5)
  - Memory impairment [Recovering/Resolving]
  - Nausea [Recovering/Resolving]
  - Blood sodium abnormal [Recovering/Resolving]
  - Foot fracture [Recovering/Resolving]
  - Syncope [Recovering/Resolving]
